FAERS Safety Report 13466659 (Version 2)
Quarter: 2017Q2

REPORT INFORMATION
  Report Type: Spontaneous
  Country: US (occurrence: US)
  Receive Date: 20170421
  Receipt Date: 20170520
  Transmission Date: 20170830
  Serious: No
  Sender: FDA-Public Use
  Company Number: US-TEVA-723639ACC

PATIENT
  Sex: Female
  Weight: 45.4 kg

DRUGS (1)
  1. IBANDTAB-A [Suspect]
     Active Substance: IBANDRONIC ACID
     Indication: OSTEOPOROSIS POSTMENOPAUSAL
     Dates: start: 201607

REACTIONS (1)
  - Pain [Unknown]
